FAERS Safety Report 23234671 (Version 1)
Quarter: 2023Q4

REPORT INFORMATION
  Report Type: Report from Study
  Country: CA (occurrence: None)
  Receive Date: 20231128
  Receipt Date: 20231128
  Transmission Date: 20240109
  Serious: Yes (Other)
  Sender: FDA-Public Use
  Company Number: 2023A245877

PATIENT
  Sex: Female

DRUGS (5)
  1. TEZSPIRE [Suspect]
     Active Substance: TEZEPELUMAB-EKKO
     Indication: Asthma
     Dosage: 210.0MG UNKNOWN
     Route: 058
     Dates: start: 20230302
  2. TEZSPIRE [Suspect]
     Active Substance: TEZEPELUMAB-EKKO
     Indication: Asthma
     Dosage: 210.0MG UNKNOWN
     Route: 058
     Dates: start: 20231117
  3. SPIRIVA RESPIMAT [Concomitant]
     Active Substance: TIOTROPIUM BROMIDE
     Dosage: 2 INH
  4. VENTOLIN [Concomitant]
     Active Substance: ALBUTEROL SULFATE
     Dosage: 100.0UG UNKNOWN
  5. ZENHALE [Concomitant]
     Active Substance: FORMOTEROL FUMARATE\MOMETASONE FUROATE
     Dosage: 2 INH

REACTIONS (10)
  - Pleural effusion [Unknown]
  - Cough [Unknown]
  - Dysphonia [Unknown]
  - Dyspnoea [Unknown]
  - Sputum discoloured [Unknown]
  - Infection [Unknown]
  - Dysphagia [Unknown]
  - Throat tightness [Unknown]
  - Nasopharyngitis [Unknown]
  - Drug ineffective [Unknown]
